FAERS Safety Report 13554785 (Version 1)
Quarter: 2017Q2

REPORT INFORMATION
  Report Type: Report from Study
  Country: US (occurrence: US)
  Receive Date: 20170517
  Receipt Date: 20170517
  Transmission Date: 20170830
  Serious: Yes (Other)
  Sender: FDA-Public Use
  Company Number: US-ENDO PHARMACEUTICALS INC-2017-002868

PATIENT
  Age: 41 Year
  Sex: Male
  Weight: 70.3 kg

DRUGS (1)
  1. XIAFLEX [Suspect]
     Active Substance: COLLAGENASE CLOSTRIDIUM HISTOLYTICUM
     Indication: PEYRONIE^S DISEASE
     Dosage: UNK UNK, UNKNOWN
     Route: 026
     Dates: end: 201704

REACTIONS (4)
  - Feeling hot [Unknown]
  - Surgery [Recovered/Resolved]
  - Penis disorder [Unknown]
  - Penile swelling [Unknown]

NARRATIVE: CASE EVENT DATE: 201704
